FAERS Safety Report 13639673 (Version 1)
Quarter: 2017Q2

REPORT INFORMATION
  Report Type: Spontaneous
  Country: US (occurrence: US)
  Receive Date: 20170609
  Receipt Date: 20170609
  Transmission Date: 20170830
  Serious: Yes (Other)
  Sender: FDA-Public Use
  Company Number: US-ROCHE-1570965

PATIENT
  Sex: Female

DRUGS (7)
  1. KLONOPIN [Suspect]
     Active Substance: CLONAZEPAM
     Indication: PRODUCT USED FOR UNKNOWN INDICATION
     Route: 065
  2. KEPPRA [Concomitant]
     Active Substance: LEVETIRACETAM
     Route: 065
  3. GABAPENTIN. [Concomitant]
     Active Substance: GABAPENTIN
     Route: 065
  4. LYRICA [Concomitant]
     Active Substance: PREGABALIN
     Route: 065
  5. BUSPAR [Concomitant]
     Active Substance: BUSPIRONE HYDROCHLORIDE
     Route: 065
  6. REMERON [Concomitant]
     Active Substance: MIRTAZAPINE
     Route: 065
  7. EFFEXOR [Concomitant]
     Active Substance: VENLAFAXINE HYDROCHLORIDE
     Route: 065

REACTIONS (15)
  - Viral upper respiratory tract infection [Unknown]
  - Joint instability [Unknown]
  - Restlessness [Unknown]
  - Pollakiuria [Unknown]
  - Withdrawal syndrome [Unknown]
  - Pruritus [Unknown]
  - Anxiety [Unknown]
  - Dry eye [Unknown]
  - Dry skin [Unknown]
  - Fear [Unknown]
  - Tremor [Unknown]
  - Eye irritation [Unknown]
  - Nasal dryness [Unknown]
  - Depersonalisation/derealisation disorder [Unknown]
  - Abdominal pain upper [Unknown]
